FAERS Safety Report 20650551 (Version 2)
Quarter: 2022Q2

REPORT INFORMATION
  Report Type: Spontaneous
  Country: US (occurrence: US)
  Receive Date: 20220329
  Receipt Date: 20220614
  Transmission Date: 20220720
  Serious: Yes (Other)
  Sender: FDA-Public Use
  Company Number: US-SA-SAC20220325001458

PATIENT
  Age: 60 Year
  Sex: Male

DRUGS (1)
  1. ZANTAC [Suspect]
     Active Substance: RANITIDINE HYDROCHLORIDE
     Indication: Intestinal ulcer
     Dosage: UNK;FREQUENCY:OTHER
     Route: 065
     Dates: start: 200701, end: 202012

REACTIONS (5)
  - Prostate cancer stage III [Unknown]
  - Breast cancer male [Unknown]
  - Leukaemia [Unknown]
  - Mesothelioma [Unknown]
  - Prostate cancer [Unknown]

NARRATIVE: CASE EVENT DATE: 20150601
